FAERS Safety Report 24538387 (Version 1)
Quarter: 2024Q4

REPORT INFORMATION
  Report Type: Spontaneous
  Country: TR (occurrence: TR)
  Receive Date: 20241023
  Receipt Date: 20241023
  Transmission Date: 20250115
  Serious: Yes (Other)
  Sender: BIOGEN
  Company Number: TR-BIOGEN-2024BI01287183

PATIENT
  Age: 5 Year
  Sex: Female
  Weight: 42 kg

DRUGS (1)
  1. SPINRAZA [Suspect]
     Active Substance: NUSINERSEN
     Indication: Spinal muscular atrophy
     Route: 050

REACTIONS (3)
  - Papilloedema [Not Recovered/Not Resolved]
  - Pseudopapilloedema [Not Recovered/Not Resolved]
  - Optic discs blurred [Not Recovered/Not Resolved]

NARRATIVE: CASE EVENT DATE: 20241010
